FAERS Safety Report 6595245-9 (Version None)
Quarter: 2010Q1

REPORT INFORMATION
  Report Type: 
  Country: None (occurrence: None)
  Receive Date: 20100212
  Receipt Date: 20100127
  Transmission Date: 20100710
  Serious: Yes (Other)
  Sender: FDA-Public Use
  Company Number: 10-000156

PATIENT
  Age: 36 Year
  Sex: Female
  Weight: 70.7 kg

DRUGS (2)
  1. DORYX [Suspect]
     Indication: ACNE
     Dosage: 150 MG, SINGLE, ORAL
     Route: 048
     Dates: start: 20091201, end: 20091201
  2. DOXYCYCLINE [Suspect]
     Indication: ACNE
     Dosage: ORAL
     Route: 048
     Dates: start: 20090101, end: 20090101

REACTIONS (8)
  - ABDOMINAL DISCOMFORT [None]
  - ABDOMINAL PAIN [None]
  - DIARRHOEA [None]
  - DIZZINESS [None]
  - DYSPNOEA [None]
  - FEELING ABNORMAL [None]
  - HYPOAESTHESIA [None]
  - NAUSEA [None]
